FAERS Safety Report 6988890-X (Version None)
Quarter: 2010Q3

REPORT INFORMATION
  Report Type: 
  Country: None (occurrence: None)
  Receive Date: 20100916
  Receipt Date: 20100907
  Transmission Date: 20110219
  Serious: Yes (Hospitalization, Other)
  Sender: FDA-Public Use
  Company Number: US-AMGEN-KDL435578

PATIENT
  Age: 58 Year
  Sex: Female

DRUGS (4)
  1. NEULASTA [Suspect]
     Indication: CHEMOTHERAPY
  2. ADRIAMYCIN PFS [Concomitant]
  3. CYCLOPHOSPHAMIDE [Concomitant]
  4. TAXOTERE [Concomitant]

REACTIONS (3)
  - FEBRILE NEUTROPENIA [None]
  - SALMONELLA TEST POSITIVE [None]
  - STREPTOCOCCAL BACTERAEMIA [None]
